FAERS Safety Report 4371668-3 (Version None)
Quarter: 2004Q2

REPORT INFORMATION
  Report Type: 
  Country: None (occurrence: None)
  Receive Date: 20040603
  Receipt Date: 20040603
  Transmission Date: 20050107
  Serious: No
  Sender: FDA-Public Use
  Company Number: None

PATIENT
  Sex: Female

DRUGS (2)
  1. EPI CLENZ HAND SANITIZER [Suspect]
  2. TRIAD BRAND LUBRICATING JELLY [Suspect]

REACTIONS (1)
  - MEDICATION ERROR [None]
